FAERS Safety Report 7851005-X (Version None)
Quarter: 2011Q4

REPORT INFORMATION
  Report Type: 
  Country: None (occurrence: None)
  Receive Date: 20111026
  Receipt Date: 20111020
  Transmission Date: 20120403
  Serious: Yes (Other)
  Sender: FDA-Public Use
  Company Number: US-JNJFOC-20111003996

PATIENT

DRUGS (3)
  1. VELCADE [Suspect]
     Indication: DIFFUSE LARGE B-CELL LYMPHOMA
     Dosage: RAPID BOLUS IV PUSH OVER 3-5 SECS FOLLOWED BY STANDARD SALINE FLUSH OR THROUGH RUNNING IV LINE
     Route: 042
  2. RITUXAN [Suspect]
     Indication: DIFFUSE LARGE B-CELL LYMPHOMA
     Dosage: ON DAY 8 OF 21 DAY CYCLE
     Route: 042
  3. DOXORUBICIN HCL [Suspect]
     Indication: DIFFUSE LARGE B-CELL LYMPHOMA
     Dosage: {ON DAY 11 EVERY 21 DAYS AND 250 ML IN 5 % DEXTROSE (TREATMENT PLANNED FOR 6 CYCLES)}
     Route: 042

REACTIONS (1)
  - CYTOKINE RELEASE SYNDROME [None]
